FAERS Safety Report 13955809 (Version 3)
Quarter: 2017Q3

REPORT INFORMATION
  Report Type: Spontaneous
  Country: US (occurrence: US)
  Receive Date: 20170911
  Receipt Date: 20170920
  Transmission Date: 20171128
  Serious: No
  Sender: FDA-Public Use
  Company Number: US-AMGEN-USASP2017135471

PATIENT
  Age: 80 Year
  Sex: Female

DRUGS (1)
  1. ENBREL [Suspect]
     Active Substance: ETANERCEPT
     Indication: RHEUMATOID ARTHRITIS
     Dosage: UNK
     Route: 065

REACTIONS (5)
  - Limb discomfort [Recovered/Resolved]
  - Injection site pain [Unknown]
  - Cough [Unknown]
  - Mobility decreased [Recovered/Resolved]
  - Rheumatoid lung [Unknown]

NARRATIVE: CASE EVENT DATE: 201612
